FAERS Safety Report 8270125-1 (Version None)
Quarter: 2012Q2

REPORT INFORMATION
  Report Type: 
  Country: None (occurrence: None)
  Receive Date: 20120410
  Receipt Date: 20120405
  Transmission Date: 20120825
  Serious: Yes (Other)
  Sender: FDA-Public Use
  Company Number: PHHY2009CA46145

PATIENT
  Sex: Female

DRUGS (12)
  1. PROGESTERONE [Concomitant]
  2. CLONAZEPAM [Concomitant]
  3. TRAMADOL HCL [Concomitant]
  4. ESTRADIOL [Concomitant]
  5. ORENCIA [Concomitant]
     Dosage: 500 MG, UNK
     Route: 042
  6. PREDNISONE TAB [Concomitant]
     Dosage: 2 MG, QD
  7. REMERON [Concomitant]
  8. ZOPICLONE [Concomitant]
  9. ZOLEDRONOC ACID [Suspect]
     Indication: OSTEOPOROSIS
     Dosage: UNK UKN, UNK
     Route: 042
     Dates: start: 20091002
  10. ZOLEDRONOC ACID [Suspect]
     Dosage: UNK UKN, UNK
     Route: 042
     Dates: start: 20101027
  11. HYDROXYCHLOROQUINE SULFATE [Concomitant]
     Dosage: 200 MG, BID
  12. LEVOTHYROXINE SODIUM [Concomitant]

REACTIONS (4)
  - BLOOD THYROID STIMULATING HORMONE DECREASED [None]
  - MEAN CELL VOLUME ABNORMAL [None]
  - PLATELET COUNT INCREASED [None]
  - RED CELL DISTRIBUTION WIDTH INCREASED [None]
